FAERS Safety Report 16179740 (Version 1)
Quarter: 2019Q2

REPORT INFORMATION
  Report Type: Spontaneous
  Country: US (occurrence: US)
  Receive Date: 20190409
  Receipt Date: 20190409
  Transmission Date: 20190711
  Serious: Yes (Hospitalization)
  Sender: FDA-Public Use
  Company Number: None

PATIENT
  Sex: Male

DRUGS (10)
  1. METHYLPRED [Concomitant]
     Active Substance: METHYLPREDNISOLONE
  2. METOPROL TAR [Concomitant]
  3. LISINOPRIL / HCTZ [Concomitant]
     Active Substance: HYDROCHLOROTHIAZIDE\LISINOPRIL
  4. ESCITALOPRAM [Concomitant]
     Active Substance: ESCITALOPRAM OXALATE
  5. ROSUVASTATIN. [Concomitant]
     Active Substance: ROSUVASTATIN
  6. ALPRAZOLAM. [Concomitant]
     Active Substance: ALPRAZOLAM
  7. FENOFIBRATE. [Concomitant]
     Active Substance: FENOFIBRATE
  8. BUDESONIDE. [Concomitant]
     Active Substance: BUDESONIDE
  9. MESALAMINE. [Concomitant]
     Active Substance: MESALAMINE
  10. HUMIRA [Suspect]
     Active Substance: ADALIMUMAB
     Indication: COLITIS ULCERATIVE
     Dosage: ?          OTHER FREQUENCY:STARTER DOSE;?
     Route: 058
     Dates: start: 20190409

REACTIONS (1)
  - Hospitalisation [None]
